FAERS Safety Report 4915005-1 (Version None)
Quarter: 2006Q1

REPORT INFORMATION
  Report Type: 
  Country: None (occurrence: None)
  Receive Date: 20060217
  Receipt Date: 20060210
  Transmission Date: 20060701
  Serious: Yes (Other)
  Sender: FDA-Public Use
  Company Number: AU-AVENTIS-200611284GDDC

PATIENT
  Age: 52 Year
  Sex: Female

DRUGS (12)
  1. ARAVA [Suspect]
     Indication: RHEUMATOID ARTHRITIS
     Route: 048
     Dates: start: 20030203
  2. METHOTREXATE [Concomitant]
     Dosage: DOSE: UNK
  3. INDOMETHACIN [Concomitant]
     Dosage: DOSE: UNK
  4. PREDNISONE [Concomitant]
     Dosage: DOSE: UNK
  5. NEXIUM [Concomitant]
     Dosage: DOSE: UNK
  6. FLEXIDONE [Concomitant]
     Dosage: DOSE: UNK
  7. VALIUM [Concomitant]
     Dosage: DOSE: UNK
  8. TRAMAL [Concomitant]
     Dosage: DOSE: UNK
  9. DI-GESIC [Concomitant]
     Dosage: DOSE: UNK
  10. FISH OIL [Concomitant]
     Dosage: DOSE: UNK
  11. ANTIINFLAMMATORY/ANTIRHEUMATIC PRODUCTS [Concomitant]
     Dosage: DOSE: UNK
  12. EVENING PRIMROSE OIL [Concomitant]
     Dosage: DOSE: UNK

REACTIONS (3)
  - DIARRHOEA [None]
  - MOUTH ULCERATION [None]
  - PLEURISY [None]
